FAERS Safety Report 10196301 (Version 1)
Quarter: 2014Q2

REPORT INFORMATION
  Report Type: Spontaneous
  Country: US (occurrence: US)
  Receive Date: 20140527
  Receipt Date: 20140527
  Transmission Date: 20141212
  Serious: Yes (Hospitalization)
  Sender: FDA-Public Use
  Company Number: US-BAYER-2014-076919

PATIENT
  Age: 50 Year
  Sex: Female
  Weight: 83.45 kg

DRUGS (4)
  1. YASMIN [Suspect]
     Indication: CONTRACEPTION
  2. ADVAIR [Concomitant]
  3. MOTRIN [Concomitant]
  4. HERBALIFE PRODUCTS [Concomitant]

REACTIONS (1)
  - Deep vein thrombosis [Recovered/Resolved]
